FAERS Safety Report 5034589-9 (Version None)
Quarter: 2006Q2

REPORT INFORMATION
  Report Type: 
  Country: None (occurrence: None)
  Receive Date: 20060621
  Receipt Date: 20060606
  Transmission Date: 20061013
  Serious: Yes (Disabling)
  Sender: FDA-Public Use
  Company Number: 2006S1000122

PATIENT
  Age: 6 Day
  Sex: Female

DRUGS (7)
  1. INOMAX [Suspect]
     Indication: LUNG DISORDER
     Dosage: 5 PPM; CONT; INH; SEE IMAGE
     Route: 055
     Dates: start: 20060531
  2. INOMAX [Suspect]
     Indication: PROPHYLAXIS
     Dosage: 5 PPM; CONT; INH; SEE IMAGE
     Route: 055
     Dates: start: 20060531
  3. INOMAX [Suspect]
     Indication: LUNG DISORDER
     Dosage: 5 PPM; CONT; INH; SEE IMAGE
     Route: 055
     Dates: start: 20060531
  4. INOMAX [Suspect]
     Indication: PROPHYLAXIS
     Dosage: 5 PPM; CONT; INH; SEE IMAGE
     Route: 055
     Dates: start: 20060531
  5. AMPICILLIN [Concomitant]
  6. GENTAMICIN [Concomitant]
  7. CEFOTAXIME SODIUM [Concomitant]

REACTIONS (3)
  - C-REACTIVE PROTEIN INCREASED [None]
  - INTRAVENTRICULAR HAEMORRHAGE NEONATAL [None]
  - LEUKOCYTOSIS [None]
